FAERS Safety Report 6305506-6 (Version None)
Quarter: 2009Q3

REPORT INFORMATION
  Report Type: 
  Country: None (occurrence: None)
  Receive Date: 20090807
  Receipt Date: 20090729
  Transmission Date: 20100115
  Serious: Yes (Other)
  Sender: FDA-Public Use
  Company Number: GXKR2009AT08703

PATIENT
  Age: 2 Day
  Sex: Male
  Weight: 3 kg

DRUGS (1)
  1. AMPICILLIN SODIUM [Suspect]
     Indication: SEPSIS NEONATAL
     Dosage: INTRA-ARTERIAL
     Route: 013
     Dates: start: 20090728

REACTIONS (1)
  - DRUG ADMINISTRATION ERROR [None]
